FAERS Safety Report 4565890-0 (Version None)
Quarter: 2005Q1

REPORT INFORMATION
  Report Type: 
  Country: None (occurrence: None)
  Receive Date: 20050128
  Receipt Date: 20050120
  Transmission Date: 20050727
  Serious: Yes (Death, Hospitalization)
  Sender: FDA-Public Use
  Company Number: 2005EU000028

PATIENT
  Age: 62 Year
  Sex: Male
  Weight: 56 kg

DRUGS (6)
  1. PROGRAF [Suspect]
     Indication: LIVER TRANSPLANT
     Dosage: 2.00 MG, /D, ORAL
     Route: 048
     Dates: start: 20041021
  2. PREDNISONE TAB [Suspect]
     Dosage: 5.00 MG, /D, ORAL
     Route: 048
     Dates: start: 20041221
  3. TRAMADOL HCL [Suspect]
     Dosage: 150.00 MG, /D, ORAL
     Route: 048
     Dates: start: 20041021
  4. OMEPRAZOLE [Suspect]
     Dosage: 40.00 MG, /D, ORAL
     Route: 048
     Dates: start: 20041021
  5. ZYRTEC [Suspect]
     Dosage: 1.00 DF, /D, ORAL
     Route: 048
     Dates: start: 20041021
  6. TETRACYCLINE [Suspect]
     Indication: NOSOCOMIAL INFECTION
     Dosage: 50.00 MG, BID, INTRAVENOUS
     Route: 042
     Dates: start: 20041203, end: 20041208

REACTIONS (18)
  - ABNORMAL SENSATION IN EYE [None]
  - CHOLESTASIS [None]
  - COMA [None]
  - CONFUSIONAL STATE [None]
  - CONVULSION [None]
  - DRUG TOXICITY [None]
  - EXTRAPYRAMIDAL DISORDER [None]
  - FLUID RETENTION [None]
  - GRAFT DYSFUNCTION [None]
  - HEPATIC FAILURE [None]
  - KLEBSIELLA INFECTION [None]
  - METABOLIC ENCEPHALOPATHY [None]
  - NOSOCOMIAL INFECTION [None]
  - PATHOGEN RESISTANCE [None]
  - RENAL FAILURE CHRONIC [None]
  - RETINOPATHY HYPERTENSIVE [None]
  - SEPSIS [None]
  - VISUAL DISTURBANCE [None]
